FAERS Safety Report 14361832 (Version 1)
Quarter: 2018Q1

REPORT INFORMATION
  Report Type: Spontaneous
  Country: US (occurrence: US)
  Receive Date: 20180108
  Receipt Date: 20180108
  Transmission Date: 20180509
  Serious: No
  Sender: FDA-Public Use
  Company Number: PHEH2018US000651

PATIENT
  Sex: Female

DRUGS (1)
  1. TYKERB [Suspect]
     Active Substance: LAPATINIB DITOSYLATE
     Indication: IMMUNE THROMBOCYTOPENIC PURPURA
     Dosage: 1250 MG, QD
     Route: 048
     Dates: start: 20170804

REACTIONS (3)
  - Skin depigmentation [Unknown]
  - Onychomadesis [Unknown]
  - Dry skin [Unknown]
